FAERS Safety Report 20165076 (Version 1)
Quarter: 2021Q4

REPORT INFORMATION
  Report Type: Spontaneous
  Country: CZ (occurrence: CZ)
  Receive Date: 20211209
  Receipt Date: 20211209
  Transmission Date: 20220303
  Serious: Yes (Hospitalization, Other)
  Sender: FDA-Public Use
  Company Number: CZ-MYLANLABS-2021M1001615

PATIENT
  Age: 72 Year
  Sex: Female

DRUGS (12)
  1. MELOXICAM [Suspect]
     Active Substance: MELOXICAM
     Indication: Arthralgia
     Dosage: 15 MILLIGRAM
     Route: 048
  2. MELOXICAM [Suspect]
     Active Substance: MELOXICAM
     Indication: Spinal pain
  3. IBUPROFEN [Suspect]
     Active Substance: IBUPROFEN
     Indication: Hypertensive crisis
     Dosage: 400 MILLIGRAM
  4. IBUPROFEN [Suspect]
     Active Substance: IBUPROFEN
     Indication: Arthralgia
  5. CAPTOPRIL [Concomitant]
     Active Substance: CAPTOPRIL
     Indication: Hypertensive crisis
     Dosage: UNK
  6. DIAZEPAM [Concomitant]
     Active Substance: DIAZEPAM
     Indication: Anxiety
     Dosage: UNK
  7. RAMIPRIL [Concomitant]
     Active Substance: RAMIPRIL
     Indication: Hypertensive crisis
     Dosage: 10 MILLIGRAM, QD
     Route: 048
  8. RAMIPRIL [Concomitant]
     Active Substance: RAMIPRIL
     Indication: Hypertension
  9. NITRENDIPINE [Concomitant]
     Active Substance: NITRENDIPINE
     Indication: Hypertensive crisis
     Dosage: UNK
  10. MOXONIDINE [Concomitant]
     Active Substance: MOXONIDINE
     Indication: Hypertension
     Dosage: 0.3 MILLIGRAM, QD
     Route: 048
  11. MOXONIDINE [Concomitant]
     Active Substance: MOXONIDINE
     Dosage: 0.3 MG, 3X/DAY
  12. ESCITALOPRAM [Concomitant]
     Active Substance: ESCITALOPRAM OXALATE
     Indication: Hypertensive crisis
     Dosage: UNK

REACTIONS (10)
  - Therapeutic product effect incomplete [Unknown]
  - Hypertensive crisis [Recovered/Resolved]
  - Blood pressure inadequately controlled [Recovered/Resolved]
  - Head discomfort [Recovered/Resolved]
  - Anxiety [Recovered/Resolved]
  - Flushing [Recovered/Resolved]
  - Palpitations [Recovered/Resolved]
  - Dizziness [Recovered/Resolved]
  - Renal failure [Recovered/Resolved]
  - Fatigue [Recovered/Resolved]

NARRATIVE: CASE EVENT DATE: 20200401
